FAERS Safety Report 8764464 (Version 1)
Quarter: 2012Q4

REPORT INFORMATION
  Report Type: 
  Country: US (occurrence: US)
  Receive Date: 20120831
  Receipt Date: 20120831
  Transmission Date: 20130627
  Serious: Yes (Other)
  Sender: FDA-Public Use
  Company Number: US-ASTRAZENECA-2012SE61322

PATIENT
  Age: 52 Year
  Sex: Male
  Weight: 106.6 kg

DRUGS (7)
  1. SEROQUEL [Suspect]
     Indication: BIPOLAR DISORDER
     Dosage: 50 MG IN THE MORNING AND 500 MG IN THE EVENING
     Route: 048
  2. SEROQUEL [Suspect]
     Indication: MENTAL DISABILITY
     Dosage: 50 MG IN THE MORNING AND 500 MG IN THE EVENING
     Route: 048
  3. SEROQUEL [Suspect]
     Indication: POST-TRAUMATIC STRESS DISORDER
     Dosage: 50 MG IN THE MORNING AND 500 MG IN THE EVENING
     Route: 048
  4. SEROQUEL [Suspect]
     Indication: OBSESSIVE-COMPULSIVE DISORDER
     Dosage: 50 MG IN THE MORNING AND 500 MG IN THE EVENING
     Route: 048
  5. PERCOCET [Concomitant]
  6. LANSOPRAZOLE [Concomitant]
  7. GABAPENTIN [Concomitant]

REACTIONS (8)
  - Vascular occlusion [Unknown]
  - Insomnia [Not Recovered/Not Resolved]
  - Memory impairment [Not Recovered/Not Resolved]
  - Cough [Unknown]
  - Pharyngeal disorder [Not Recovered/Not Resolved]
  - Physical disability [Unknown]
  - Gait disturbance [Unknown]
  - Drug dose omission [Not Recovered/Not Resolved]
